FAERS Safety Report 6477417-7 (Version None)
Quarter: 2009Q4

REPORT INFORMATION
  Report Type: 
  Country: None (occurrence: None)
  Receive Date: 20091207
  Receipt Date: 20091109
  Transmission Date: 20100525
  Serious: Yes (Disabling)
  Sender: FDA-Public Use
  Company Number: US-SANOFI-AVENTIS-200918161US

PATIENT
  Age: 74 Year
  Sex: Female

DRUGS (4)
  1. INSULIN GLARGINE [Suspect]
     Dosage: DOSE:20 UNIT(S)
     Route: 058
  2. OPTICLICK [Suspect]
  3. ADVAIR DISKUS 100/50 [Concomitant]
     Dosage: 220/50
  4. SINGULAIR [Concomitant]

REACTIONS (2)
  - BALANCE DISORDER [None]
  - FALL [None]
